FAERS Safety Report 8686641 (Version 4)
Quarter: 2013Q4

REPORT INFORMATION
  Report Type: Spontaneous
  Country: US (occurrence: US)
  Receive Date: 20120727
  Receipt Date: 20131031
  Transmission Date: 20140711
  Serious: Yes (Other)
  Sender: FDA-Public Use
  Company Number: US-009507513-1207USA009570

PATIENT
  Age: 59 Year
  Sex: Male
  Weight: 78.46 kg

DRUGS (1)
  1. JANUMET [Suspect]
     Dosage: 2 DF, QD
     Route: 048
     Dates: start: 20120420, end: 20120430

REACTIONS (3)
  - Somnolence [Recovering/Resolving]
  - Asthenia [Recovering/Resolving]
  - Dizziness [Recovering/Resolving]
